FAERS Safety Report 22367238 (Version 1)
Quarter: 2023Q2

REPORT INFORMATION
  Report Type: Report from Study
  Country: FR (occurrence: FR)
  Receive Date: 20230525
  Receipt Date: 20230525
  Transmission Date: 20230722
  Serious: Yes (Hospitalization)
  Sender: FDA-Public Use
  Company Number: FR-JNJFOC-20230551505

PATIENT
  Sex: Male
  Weight: 53.3 kg

DRUGS (1)
  1. INFLIXIMAB [Suspect]
     Active Substance: INFLIXIMAB
     Indication: Inflammatory bowel disease
     Dosage: LAST ADMINISTRATION BEFORE THE EVENT ON 27 OCT 2022
     Route: 041
     Dates: start: 20161007

REACTIONS (1)
  - Varicella zoster virus infection [Recovered/Resolved]

NARRATIVE: CASE EVENT DATE: 20221113
